FAERS Safety Report 20868987 (Version 1)
Quarter: 2022Q2

REPORT INFORMATION
  Report Type: Spontaneous
  Country: US (occurrence: None)
  Receive Date: 20220520
  Receipt Date: 20220520
  Transmission Date: 20220721
  Serious: No
  Sender: FDA-Public Use
  Company Number: None

PATIENT

DRUGS (2)
  1. OZOBAX [Suspect]
     Active Substance: BACLOFEN
     Route: 048
  2. FLEQSUVY [Suspect]
     Active Substance: BACLOFEN
     Route: 048

REACTIONS (2)
  - Product label confusion [None]
  - Circumstance or information capable of leading to medication error [None]
